FAERS Safety Report 7136982-7 (Version None)
Quarter: 2010Q4

REPORT INFORMATION
  Report Type: 
  Country: None (occurrence: None)
  Receive Date: 20101206
  Receipt Date: 20101122
  Transmission Date: 20110411
  Serious: Yes (Other)
  Sender: FDA-Public Use
  Company Number: US-CELGENEUS-163-21880-10100847

PATIENT
  Sex: Female

DRUGS (6)
  1. REVLIMID [Suspect]
     Indication: MULTIPLE MYELOMA
     Route: 048
     Dates: start: 20070606, end: 20071126
  2. REVLIMID [Suspect]
     Route: 048
     Dates: start: 20100710, end: 20100928
  3. LASIX [Concomitant]
     Route: 065
  4. LASIX [Concomitant]
     Route: 065
  5. DEXAMETHASONE [Concomitant]
     Route: 065
  6. ZOFRAN [Concomitant]
     Indication: NAUSEA
     Route: 065
     Dates: start: 20090301

REACTIONS (2)
  - CARDIAC FAILURE CONGESTIVE [None]
  - PLEURAL EFFUSION [None]
